FAERS Safety Report 7274350-8 (Version None)
Quarter: 2011Q1

REPORT INFORMATION
  Report Type: 
  Country: None (occurrence: None)
  Receive Date: 20110131
  Receipt Date: 20110131
  Transmission Date: 20110831
  Serious: Yes (Other)
  Sender: FDA-Public Use
  Company Number: None

PATIENT
  Age: 63 Year
  Sex: Male
  Weight: 87.4 kg

DRUGS (14)
  1. OFATUMUMAB [Suspect]
     Indication: CHRONIC LYMPHOCYTIC LEUKAEMIA
     Dosage: 2000MG IV DAY 1
     Dates: start: 20110126
  2. OFATUMUMAB [Suspect]
     Indication: CHRONIC LYMPHOCYTIC LEUKAEMIA
     Dosage: 2000MG IV DAY 1
     Dates: start: 20101202
  3. OFATUMUMAB [Suspect]
     Indication: CHRONIC LYMPHOCYTIC LEUKAEMIA
     Dosage: 2000MG IV DAY 1
     Dates: start: 20101229
  4. BENADRYL [Concomitant]
  5. METOPROLOL SUCCINATE [Concomitant]
  6. NITROGLYCERIN [Concomitant]
  7. MULTI-VITAMINS [Concomitant]
  8. SEPTRA [Concomitant]
  9. SIMVASTATIN [Concomitant]
  10. XANAX [Concomitant]
  11. ASPIRIN [Concomitant]
  12. ACYCLOVIR [Concomitant]
  13. DIOVAN [Concomitant]
  14. ALLOPURINOL [Concomitant]

REACTIONS (1)
  - ALANINE AMINOTRANSFERASE INCREASED [None]
